FAERS Safety Report 5371004-X (Version None)
Quarter: 2007Q2

REPORT INFORMATION
  Report Type: 
  Country: None (occurrence: None)
  Receive Date: 20070626
  Receipt Date: 20070613
  Transmission Date: 20071010
  Serious: Yes (Hospitalization, Other)
  Sender: FDA-Public Use
  Company Number: US-ELI_LILLY_AND_COMPANY-US200705000306

PATIENT
  Sex: Female
  Weight: 51.7 kg

DRUGS (2)
  1. FORTEO [Suspect]
     Indication: OSTEOPOROSIS
     Dosage: 20 UG, DAILY (1/D)
     Dates: start: 20061201
  2. EVISTA [Suspect]
     Dosage: UNK, UNKNOWN

REACTIONS (5)
  - ACCIDENTAL OVERDOSE [None]
  - FALL [None]
  - HIP FRACTURE [None]
  - MEDICATION ERROR [None]
  - PHARMACEUTICAL PRODUCT COMPLAINT [None]
